FAERS Safety Report 22611306 (Version 1)
Quarter: 2023Q2

REPORT INFORMATION
  Report Type: Spontaneous
  Country: FR (occurrence: FR)
  Receive Date: 20230616
  Receipt Date: 20230616
  Transmission Date: 20230721
  Serious: Yes (Death, Other)
  Sender: FDA-Public Use
  Company Number: FR-JAZZ PHARMACEUTICALS-2023-FR-012978

PATIENT

DRUGS (3)
  1. VYXEOS [Suspect]
     Active Substance: CYTARABINE\DAUNORUBICIN
     Indication: Chronic myelomonocytic leukaemia
     Dosage: 29 MILLIGRAM/SQ. METER/DAY D-14-D-12
  2. FLUDARABINE [Suspect]
     Active Substance: FLUDARABINE PHOSPHATE
     Indication: Chronic myelomonocytic leukaemia
     Dosage: 30 MG.M?/D FROM D-5 TO D-2
  3. TREOSULFAN [Suspect]
     Active Substance: TREOSULFAN
     Indication: Chronic myelomonocytic leukaemia
     Dosage: 10 GRAM PER SQUARE METRE/DAY D-6 TO D4

REACTIONS (5)
  - Leukaemia recurrent [Fatal]
  - Febrile neutropenia [Unknown]
  - Enterocolitis [Unknown]
  - Stomatitis [Unknown]
  - Off label use [Unknown]
